FAERS Safety Report 9837198 (Version 1)
Quarter: 2014Q1

REPORT INFORMATION
  Report Type: Spontaneous
  Country: US (occurrence: None)
  Receive Date: 20140117
  Receipt Date: 20140117
  Transmission Date: 20141002
  Serious: Yes (Other)
  Sender: FDA-Public Use
  Company Number: None

PATIENT
  Age: 66 Year
  Sex: Female
  Weight: 53.52 kg

DRUGS (1)
  1. AZILECT [Suspect]
     Indication: PARKINSON^S DISEASE
     Route: 048
     Dates: start: 20131014, end: 20140107

REACTIONS (14)
  - Paraesthesia [None]
  - Burning sensation [None]
  - Formication [None]
  - Hypoaesthesia [None]
  - Paraesthesia [None]
  - Sneezing [None]
  - Chills [None]
  - Dry mouth [None]
  - Burns second degree [None]
  - Photosensitivity reaction [None]
  - Drug withdrawal syndrome [None]
  - Chills [None]
  - Feeling abnormal [None]
  - Photosensitivity reaction [None]
